FAERS Safety Report 9656435 (Version 1)
Quarter: 2013Q4

REPORT INFORMATION
  Report Type: Spontaneous
  Country: US (occurrence: US)
  Receive Date: 20131030
  Receipt Date: 20131030
  Transmission Date: 20140711
  Serious: Yes (Other)
  Sender: FDA-Public Use
  Company Number: US-BAYER-2013-130049

PATIENT
  Sex: Female

DRUGS (2)
  1. MIRENA [Suspect]
     Indication: GENITAL HAEMORRHAGE
     Dosage: 20 MCG/24HR, CONT
     Route: 015
  2. MIRENA [Suspect]
     Indication: OESTROGEN REPLACEMENT THERAPY

REACTIONS (3)
  - Genital haemorrhage [None]
  - Genital haemorrhage [None]
  - Off label use [None]
